FAERS Safety Report 16600532 (Version 1)
Quarter: 2019Q3

REPORT INFORMATION
  Report Type: Spontaneous
  Country: FR (occurrence: FR)
  Receive Date: 20190720
  Receipt Date: 20190720
  Transmission Date: 20191004
  Serious: Yes (Hospitalization)
  Sender: FDA-Public Use
  Company Number: FR-AUROBINDO-AUR-APL-2019-041937

PATIENT

DRUGS (2)
  1. CODOLIPRANE [Suspect]
     Active Substance: ACETAMINOPHEN\CODEINE PHOSPHATE
     Indication: PRODUCT USED FOR UNKNOWN INDICATION
     Dosage: 12 DOSAGE FORM, IN TOTAL
     Route: 048
     Dates: start: 20171207, end: 20171207
  2. IBUPROFEN. [Suspect]
     Active Substance: IBUPROFEN
     Indication: PRODUCT USED FOR UNKNOWN INDICATION
     Dosage: 10 DOSAGE FORM, IN TOTAL
     Route: 048
     Dates: start: 20171207, end: 20171207

REACTIONS (2)
  - Toxicity to various agents [Recovered/Resolved]
  - Analgesic drug level increased [Recovered/Resolved]

NARRATIVE: CASE EVENT DATE: 20171207
